FAERS Safety Report 6891668-9 (Version None)
Quarter: 2010Q3

REPORT INFORMATION
  Report Type: 
  Country: None (occurrence: None)
  Receive Date: 20100731
  Receipt Date: 20080714
  Transmission Date: 20110219
  Serious: Yes (Hospitalization, Other)
  Sender: FDA-Public Use
  Company Number: US-PFIZER INC-2007079285

PATIENT
  Sex: Female

DRUGS (4)
  1. GABAPENTIN [Suspect]
     Dates: start: 20070808, end: 20070809
  2. ETANERCEPT [Suspect]
     Indication: PSORIASIS
     Dates: start: 20070629, end: 20070101
  3. VICODIN [Suspect]
     Dates: start: 20070808, end: 20070809
  4. IBUPROFEN TABLETS [Concomitant]
     Dates: start: 20070806

REACTIONS (1)
  - ACUTE PRERENAL FAILURE [None]
